FAERS Safety Report 9962566 (Version 1)
Quarter: 2014Q1

REPORT INFORMATION
  Report Type: Report from Study
  Country: US (occurrence: US)
  Receive Date: 20140305
  Receipt Date: 20140305
  Transmission Date: 20141002
  Serious: No
  Sender: FDA-Public Use
  Company Number: US-ABBVIE-13P-163-1115528-00

PATIENT
  Age: 55 Year
  Sex: Male
  Weight: 86.26 kg

DRUGS (3)
  1. HUMIRA [Suspect]
     Indication: CROHN^S DISEASE
     Route: 058
     Dates: end: 2012
  2. HUMIRA [Suspect]
     Route: 058
     Dates: start: 2012
  3. MULTIVITAMIN [Concomitant]
     Indication: VITAMIN SUPPLEMENTATION

REACTIONS (1)
  - Expired drug administered [Recovered/Resolved]
